FAERS Safety Report 18669773 (Version 1)
Quarter: 2020Q4

REPORT INFORMATION
  Report Type: Other
  Country: FR (occurrence: FR)
  Receive Date: 20201228
  Receipt Date: 20201228
  Transmission Date: 20210114
  Serious: Yes (Death, Congenital Anomaly, Other)
  Sender: FDA-Public Use
  Company Number: FR-MACLEODS PHARMACEUTICALS US LTD-MAC2020029589

PATIENT

DRUGS (4)
  1. TENOFOVIR [Suspect]
     Active Substance: TENOFOVIR
     Indication: PRODUCT USED FOR UNKNOWN INDICATION
     Dosage: UNK, 1 COURSE, EXPOSURE PRIOR TO CONCEPTION AND EARLIEST EXPOSURE TRIMESTER ARE UNKNOWN
     Route: 064
  2. EMTRICITABINE [Suspect]
     Active Substance: EMTRICITABINE
     Indication: PRODUCT USED FOR UNKNOWN INDICATION
     Dosage: UNK, 1 COURSE, EXPOSURE PRIOR TO CONCEPTION AND EARLIEST EXPOSURE TRIMESTER ARE UNKNOWN
     Route: 064
  3. NORVIR [Suspect]
     Active Substance: RITONAVIR
     Indication: PRODUCT USED FOR UNKNOWN INDICATION
     Dosage: UNK, 1 COURSE, EXPOSURE PRIOR TO CONCEPTION AND EARLIEST EXPOSURE TRIMESTER ARE UNKNOWN
     Route: 064
  4. PREZISTA [Suspect]
     Active Substance: DARUNAVIR ETHANOLATE
     Indication: PRODUCT USED FOR UNKNOWN INDICATION
     Dosage: UNK, 1 COURSE, EXPOSURE PRIOR TO CONCEPTION AND EARLIEST EXPOSURE TRIMESTER ARE UNKNOWN
     Route: 064

REACTIONS (4)
  - Heart disease congenital [Fatal]
  - Congenital hydronephrosis [Fatal]
  - Polydactyly [Fatal]
  - Foetal exposure during pregnancy [Unknown]
